FAERS Safety Report 7377452-0 (Version None)
Quarter: 2011Q1

REPORT INFORMATION
  Report Type: 
  Country: None (occurrence: None)
  Receive Date: 20110316
  Receipt Date: 20110304
  Transmission Date: 20110831
  Serious: Yes (Other)
  Sender: FDA-Public Use
  Company Number: 1000019244

PATIENT
  Age: 81 Year
  Sex: Male
  Weight: 65 kg

DRUGS (4)
  1. DIURETICS [Concomitant]
  2. ROFLUMILAST (ROFLUMILAST) (TABLETS) [Suspect]
     Indication: CHRONIC OBSTRUCTIVE PULMONARY DISEASE
     Dosage: 500 MCG (500 MCG, 1 IN 1 D), ORAL
     Route: 048
     Dates: start: 20110118, end: 20110228
  3. DIGIMERCK MINOR (DIGITOXIN) [Concomitant]
  4. RANEXA [Concomitant]

REACTIONS (2)
  - DEPRESSION [None]
  - DELUSION [None]
